FAERS Safety Report 19444072 (Version 2)
Quarter: 2021Q3

REPORT INFORMATION
  Report Type: Spontaneous
  Country: JP (occurrence: JP)
  Receive Date: 20210621
  Receipt Date: 20210712
  Transmission Date: 20211014
  Serious: Yes (Hospitalization, Other)
  Sender: FDA-Public Use
  Company Number: JP-009507513-2104JPN000512J

PATIENT
  Age: 83 Year
  Sex: Male
  Weight: 53 kg

DRUGS (7)
  1. LOXOPROFEN NA [Concomitant]
     Active Substance: LOXOPROFEN SODIUM
     Indication: PAIN IN EXTREMITY
     Dosage: 60 MILLIGRAM, TID
     Route: 048
     Dates: start: 20190924, end: 20210120
  2. CARBOPLATIN. [Concomitant]
     Active Substance: CARBOPLATIN
     Indication: LUNG SQUAMOUS CELL CARCINOMA STAGE III
     Dosage: 400 MILLIGRAM, Q3W
     Route: 041
     Dates: start: 20191118, end: 20200127
  3. REBAMIPIDE [Concomitant]
     Active Substance: REBAMIPIDE
     Indication: PAIN IN EXTREMITY
     Dosage: 100 MILLIGRAM, TID
     Route: 048
     Dates: start: 20190924, end: 20210222
  4. TAKECAB [Concomitant]
     Active Substance: VONOPRAZAN FUMARATE
     Indication: PROPHYLAXIS AGAINST GASTROINTESTINAL ULCER
     Dosage: 10 MILLIGRAM, QD
     Route: 048
     Dates: start: 20210120, end: 20210222
  5. KEYTRUDA [Suspect]
     Active Substance: PEMBROLIZUMAB
     Indication: LUNG SQUAMOUS CELL CARCINOMA STAGE III
     Dosage: 200 MILLIGRAM, Q3W
     Route: 041
     Dates: start: 20191118, end: 20200914
  6. PACLITAXEL. [Concomitant]
     Active Substance: PACLITAXEL
     Indication: LUNG SQUAMOUS CELL CARCINOMA STAGE III
     Dosage: 230 MILLIGRAM, Q3W
     Route: 041
     Dates: start: 20191118, end: 20200127
  7. KEYTRUDA [Suspect]
     Active Substance: PEMBROLIZUMAB
     Dosage: 400 MILLIGRAM, EVERY 6 WEEKS
     Route: 041
     Dates: start: 20201005, end: 20210208

REACTIONS (4)
  - Myasthenia gravis [Recovering/Resolving]
  - Cellulitis [Recovered/Resolved]
  - Erythema multiforme [Recovered/Resolved]
  - Acrokeratosis paraneoplastica [Recovered/Resolved]

NARRATIVE: CASE EVENT DATE: 20210208
